FAERS Safety Report 4949756-X (Version None)
Quarter: 2006Q1

REPORT INFORMATION
  Report Type: 
  Country: None (occurrence: None)
  Receive Date: 20060321
  Receipt Date: 20051208
  Transmission Date: 20060701
  Serious: Yes (Hospitalization)
  Sender: FDA-Public Use
  Company Number: US-MERCK-0512USA01619

PATIENT
  Age: 64 Year
  Sex: Male
  Weight: 84 kg

DRUGS (4)
  1. VIOXX [Suspect]
     Indication: OSTEOARTHRITIS
     Route: 048
     Dates: start: 19990101, end: 20030701
  2. SYNTHROID [Concomitant]
     Route: 065
  3. PROZAC [Concomitant]
     Route: 065
  4. ZOCOR [Concomitant]
     Route: 048

REACTIONS (16)
  - ACUTE MYOCARDIAL INFARCTION [None]
  - CORONARY ARTERY DISEASE [None]
  - DERMATITIS [None]
  - EXOSTOSIS [None]
  - HEADACHE [None]
  - HIP ARTHROPLASTY [None]
  - HYPOTENSION [None]
  - ISCHAEMIA [None]
  - JOINT DISLOCATION [None]
  - MIGRAINE [None]
  - MUSCULOSKELETAL DISORDER [None]
  - NEURALGIA [None]
  - PAIN [None]
  - POSTNASAL DRIP [None]
  - ROAD TRAFFIC ACCIDENT [None]
  - SHOULDER ARTHROPLASTY [None]
